FAERS Safety Report 4807236-6 (Version None)
Quarter: 2005Q4

REPORT INFORMATION
  Report Type: 
  Country: None (occurrence: None)
  Receive Date: 20051020
  Receipt Date: 20051020
  Transmission Date: 20060501
  Serious: Yes (Life-Threatening, Hospitalization)
  Sender: FDA-Public Use
  Company Number: None

PATIENT
  Age: 62 Year
  Sex: Male
  Weight: 80.7403 kg

DRUGS (1)
  1. PACLITAXEL   100MG   FH FAULDING [Suspect]
     Indication: LUNG NEOPLASM MALIGNANT
     Dosage: 100MG  X1  IV DRIP
     Route: 041
     Dates: start: 20050823, end: 20050825

REACTIONS (2)
  - ANAPHYLACTIC REACTION [None]
  - LOSS OF CONSCIOUSNESS [None]
